FAERS Safety Report 17334922 (Version 1)
Quarter: 2020Q1

REPORT INFORMATION
  Report Type: Spontaneous
  Country: US (occurrence: US)
  Receive Date: 20200128
  Receipt Date: 20200128
  Transmission Date: 20200409
  Serious: No
  Sender: FDA-Public Use
  Company Number: US-ENDO PHARMACEUTICALS INC-2019-106568

PATIENT
  Sex: Female

DRUGS (4)
  1. PREDNISONE. [Concomitant]
     Active Substance: PREDNISONE
     Indication: PRODUCT USED FOR UNKNOWN INDICATION
     Dosage: 10 MG, UNKNOWN
     Route: 065
  2. MS CONTIN [Concomitant]
     Active Substance: MORPHINE SULFATE
     Indication: POST-TRAUMATIC STRESS DISORDER
     Dosage: UNK UNKNOWN, UNKNOWN
     Route: 065
  3. METHOTREXATE SODIUM. [Suspect]
     Active Substance: METHOTREXATE SODIUM
     Indication: RHEUMATOID ARTHRITIS
     Dosage: ONE TAB, WEEKLY
     Route: 065
     Dates: start: 199105, end: 200208
  4. ENBREL [Concomitant]
     Active Substance: ETANERCEPT
     Indication: PRODUCT USED FOR UNKNOWN INDICATION
     Dosage: UNK UNKNOWN, UNKNOWN
     Route: 065
     Dates: start: 2001

REACTIONS (4)
  - Pain [Unknown]
  - Arthralgia [Unknown]
  - Gait disturbance [Unknown]
  - Drug hypersensitivity [Unknown]
